FAERS Safety Report 5957540-3 (Version None)
Quarter: 2008Q4

REPORT INFORMATION
  Report Type: 
  Country: None (occurrence: None)
  Receive Date: 20081114
  Receipt Date: 20081027
  Transmission Date: 20090506
  Serious: Yes (Hospitalization)
  Sender: FDA-Public Use
  Company Number: WAES 0811USA00094

PATIENT
  Age: 71 Year
  Sex: Female

DRUGS (6)
  1. FOSAMAX [Suspect]
     Indication: OSTEOPOROSIS
     Dosage: 35 MG/WKY
     Route: 048
     Dates: start: 20080730
  2. NEW CALCICHEW D3 GREEN T (CALCIUM CARBONATE) [Suspect]
     Indication: OSTEOPOROSIS
     Dosage: 2 TAB/DAILY
     Route: 048
     Dates: start: 20080707
  3. AMLODIN [Concomitant]
  4. DEPAS [Concomitant]
  5. MOHRUS [Concomitant]
  6. TERNELIN [Concomitant]

REACTIONS (1)
  - NEPHROLITHIASIS [None]
